FAERS Safety Report 5118973-0 (Version None)
Quarter: 2006Q3

REPORT INFORMATION
  Report Type: 
  Country: None (occurrence: None)
  Receive Date: 20060927
  Receipt Date: 20060915
  Transmission Date: 20061208
  Serious: Yes (Life-Threatening, Other)
  Sender: FDA-Public Use
  Company Number: 430020M06DEU

PATIENT
  Age: 50 Year
  Sex: Female

DRUGS (4)
  1. NOVANTRONE [Suspect]
     Indication: MULTIPLE SCLEROSIS
     Dosage: INTRAVENOUS
     Route: 042
     Dates: start: 20050201, end: 20060301
  2. METOPROLOL SUCCINATE [Concomitant]
  3. NEURONTIN [Concomitant]
  4. ATACAND [Concomitant]

REACTIONS (1)
  - ACUTE MYELOID LEUKAEMIA [None]
